FAERS Safety Report 7147532-3 (Version None)
Quarter: 2010Q4

REPORT INFORMATION
  Report Type: 
  Country: None (occurrence: None)
  Receive Date: 20101209
  Receipt Date: 20030701
  Transmission Date: 20110411
  Serious: Yes (Death, Hospitalization)
  Sender: FDA-Public Use
  Company Number: US-ACTELION-A-US2003-02943

PATIENT
  Sex: Female

DRUGS (10)
  1. BOSENTAN TABLET 62.5 MG US [Suspect]
     Indication: PULMONARY ARTERIAL HYPERTENSION
     Dosage: 62.5 MG, BID
     Route: 048
     Dates: start: 20020613
  2. BOSENTAN TABLET 62.5 MG US [Suspect]
     Dosage: 125 MG, BID
  3. DOPAMINE [Concomitant]
  4. CEREZYME [Concomitant]
     Dosage: 400 UNK, BID
  5. DEMADEX [Concomitant]
  6. ZAROXOLYN [Concomitant]
  7. K-DUR [Concomitant]
     Dosage: 20 MEQ, UNK
  8. COUMADIN [Concomitant]
     Dosage: 5 MG, S-S
  9. COUMADIN [Concomitant]
     Dosage: 7.5 MG, M-F
  10. FLOLAN [Concomitant]

REACTIONS (3)
  - CARDIAC FAILURE CONGESTIVE [None]
  - DEATH [None]
  - RIGHT VENTRICULAR FAILURE [None]
